FAERS Safety Report 4542972-0 (Version None)
Quarter: 2004Q4

REPORT INFORMATION
  Report Type: 
  Country: None (occurrence: None)
  Receive Date: 20041229
  Receipt Date: 20041217
  Transmission Date: 20050328
  Serious: Yes (Hospitalization)
  Sender: FDA-Public Use
  Company Number: A0220403756

PATIENT
  Age: 67 Year
  Sex: Male

DRUGS (7)
  1. STILNOX (ZOLPIDEM) TABLET 10 MG [Suspect]
     Indication: SLEEP DISORDER
     Dosage: 5 MG OD
     Route: 048
  2. PLAVIX [Suspect]
     Dosage: 75 MGOD
     Route: 048
  3. LEVOTHYROX (LEVOTHYROXINE SODIUM) TABLET 75 MCG [Suspect]
     Dosage: 75 MCG OD
     Route: 048
  4. NISIS (VALSARTAN) TABLET 160 MG [Suspect]
     Indication: HYPERTENSION
     Dosage: 160 MG OD
     Route: 048
  5. PEGASYS [Suspect]
     Indication: HEPATITIS C
     Dosage: 180 MCG/1 WEEK
     Route: 058
     Dates: start: 20041005
  6. COPEGUS [Suspect]
     Indication: HEPATITIS C
     Dosage: 400 MG BID
     Route: 048
     Dates: start: 20041005
  7. PAROXETINE HCL [Suspect]
     Indication: DEPRESSION
     Dosage: 20 MG OD
     Route: 048
     Dates: start: 20041005

REACTIONS (1)
  - INTERSTITIAL LUNG DISEASE [None]
